FAERS Safety Report 7071949-9 (Version None)
Quarter: 2010Q4

REPORT INFORMATION
  Report Type: 
  Country: None (occurrence: None)
  Receive Date: 20101029
  Receipt Date: 20091109
  Transmission Date: 20110411
  Serious: No
  Sender: FDA-Public Use
  Company Number: A0816064A

PATIENT
  Age: 66 Year
  Sex: Female

DRUGS (8)
  1. ADVAIR DISKUS 100/50 [Suspect]
     Indication: CHRONIC OBSTRUCTIVE PULMONARY DISEASE
     Dosage: 1PUFF TWICE PER DAY
     Route: 055
     Dates: start: 20090801
  2. SYNTHROID [Concomitant]
  3. ALEVAIRE [Concomitant]
  4. VALIUM [Concomitant]
  5. MICRO-K [Concomitant]
  6. HYDROCHLOROTHIAZIDE [Concomitant]
     Route: 048
  7. LISINOPRIL [Concomitant]
  8. VESICARE [Concomitant]

REACTIONS (2)
  - DYSPHONIA [None]
  - LARYNGITIS [None]
